FAERS Safety Report 11231067 (Version 1)
Quarter: 2015Q3

REPORT INFORMATION
  Report Type: Spontaneous
  Country: US (occurrence: US)
  Receive Date: 20150701
  Receipt Date: 20150701
  Transmission Date: 20151125
  Serious: Yes (Other)
  Sender: FDA-Public Use
  Company Number: US-PFIZER INC-2015216853

PATIENT
  Sex: Male

DRUGS (3)
  1. FLAGYL [Suspect]
     Active Substance: METRONIDAZOLE\METRONIDAZOLE HYDROCHLORIDE
     Dosage: UNK
  2. TIKOSYN [Suspect]
     Active Substance: DOFETILIDE
     Dosage: 250 ?G, 2X/DAY
     Dates: start: 2011
  3. TIKOSYN [Suspect]
     Active Substance: DOFETILIDE
     Dosage: 125 ?G, ALTERNATE DAY

REACTIONS (3)
  - Renal tubular necrosis [Unknown]
  - Renal failure [Unknown]
  - Contraindicated drug administered [Unknown]
